FAERS Safety Report 7993221-2 (Version None)
Quarter: 2011Q4

REPORT INFORMATION
  Report Type: 
  Country: None (occurrence: None)
  Receive Date: 20111219
  Receipt Date: 20110404
  Transmission Date: 20120403
  Serious: No
  Sender: FDA-Public Use
  Company Number: US-ASTRAZENECA-2011SE19019

PATIENT
  Age: 60 Year
  Sex: Male

DRUGS (4)
  1. ASPIRIN [Concomitant]
  2. OMEPRAZOLE [Concomitant]
  3. HYZAAR [Concomitant]
  4. CRESTOR [Suspect]
     Route: 048
     Dates: start: 20101122, end: 20110301

REACTIONS (1)
  - DIARRHOEA [None]
